FAERS Safety Report 8537124-3 (Version None)
Quarter: 2012Q3

REPORT INFORMATION
  Report Type: 
  Country: None (occurrence: None)
  Receive Date: 20120725
  Receipt Date: 20120723
  Transmission Date: 20120928
  Serious: Yes (Disabling)
  Sender: FDA-Public Use
  Company Number: CH-BMSGILMSD-2012-0056783

PATIENT
  Age: 42 Year
  Sex: Female

DRUGS (3)
  1. EFAVIRENZ [Concomitant]
     Indication: HIV INFECTION
  2. TRUVADA [Concomitant]
     Indication: HIV INFECTION
  3. ATRIPLA [Suspect]
     Indication: HIV INFECTION
     Dosage: 1 DF, QD
     Route: 048
     Dates: start: 20080101, end: 20120601

REACTIONS (1)
  - MUSCULAR WEAKNESS [None]
